FAERS Safety Report 16743796 (Version 1)
Quarter: 2019Q3

REPORT INFORMATION
  Report Type: Report from Study
  Country: None (occurrence: US)
  Receive Date: 20190827
  Receipt Date: 20190827
  Transmission Date: 20191005
  Serious: Yes (Other)
  Sender: FDA-Public Use
  Company Number: US-ABBVIE-19K-163-2811453-00

PATIENT
  Age: 50 Year
  Sex: Female
  Weight: 92.16 kg

DRUGS (4)
  1. LAMOTRIGINE. [Concomitant]
     Active Substance: LAMOTRIGINE
     Indication: BIPOLAR DISORDER
  2. HUMIRA [Suspect]
     Active Substance: ADALIMUMAB
     Indication: CROHN^S DISEASE
     Route: 058
     Dates: start: 201811
  3. LISINOPRIL. [Concomitant]
     Active Substance: LISINOPRIL
     Indication: HYPERTENSION
  4. METOPROLOL. [Concomitant]
     Active Substance: METOPROLOL
     Indication: HYPERTENSION

REACTIONS (13)
  - Contusion [Not Recovered/Not Resolved]
  - Cough [Recovered/Resolved]
  - Urticaria [Not Recovered/Not Resolved]
  - Night sweats [Recovered/Resolved]
  - Hepatic enzyme increased [Unknown]
  - Systemic lupus erythematosus [Unknown]
  - Arthralgia [Not Recovered/Not Resolved]
  - Influenza [Recovered/Resolved]
  - Pain in extremity [Unknown]
  - Autoimmune disorder [Not Recovered/Not Resolved]
  - Hypertension [Recovering/Resolving]
  - Rheumatoid arthritis [Unknown]
  - Gout [Unknown]

NARRATIVE: CASE EVENT DATE: 201811
